FAERS Safety Report 10241585 (Version 7)
Quarter: 2015Q2

REPORT INFORMATION
  Report Type: Spontaneous
  Country: US (occurrence: US)
  Receive Date: 20140617
  Receipt Date: 20150513
  Transmission Date: 20150821
  Serious: Yes (Hospitalization, Disabling, Other)
  Sender: FDA-Public Use
  Company Number: US-009507513-1406USA007345

PATIENT
  Sex: Male
  Weight: 82.49 kg

DRUGS (2)
  1. PROPECIA [Suspect]
     Active Substance: FINASTERIDE
     Indication: ALOPECIA
     Dosage: 1 MG, QD
     Route: 048
     Dates: start: 19980206, end: 2004
  2. PROPECIA [Suspect]
     Active Substance: FINASTERIDE
     Indication: PROPHYLAXIS
     Dosage: 2 MG, QD
     Route: 048
     Dates: start: 1998

REACTIONS (74)
  - Back pain [Unknown]
  - Dehydration [Unknown]
  - Panic attack [Not Recovered/Not Resolved]
  - Drug administration error [Unknown]
  - Laceration [Unknown]
  - Hypogonadism [Unknown]
  - Metabolic syndrome [Unknown]
  - Eating disorder [Unknown]
  - Intervertebral disc protrusion [Unknown]
  - Abdominal pain lower [Unknown]
  - Insomnia [Unknown]
  - Acute psychosis [Not Recovered/Not Resolved]
  - Appendicitis [Unknown]
  - Blood triglycerides increased [Unknown]
  - Hair colour changes [Unknown]
  - Diarrhoea [Unknown]
  - Overdose [Unknown]
  - Suicidal ideation [Not Recovered/Not Resolved]
  - Chest pain [Unknown]
  - Tremor [Unknown]
  - Atrial fibrillation [Unknown]
  - Drug hypersensitivity [Unknown]
  - Sperm analysis abnormal [Unknown]
  - Thinking abnormal [Not Recovered/Not Resolved]
  - Cognitive disorder [Not Recovered/Not Resolved]
  - Ejaculation failure [Not Recovered/Not Resolved]
  - Blood testosterone decreased [Not Recovered/Not Resolved]
  - Hypertension [Unknown]
  - Blood cholesterol increased [Not Recovered/Not Resolved]
  - Sleep apnoea syndrome [Unknown]
  - Oligospermia [Unknown]
  - Muscle spasms [Unknown]
  - Multiple fractures [Unknown]
  - Major depression [Unknown]
  - Obesity [Unknown]
  - Food allergy [Unknown]
  - Anti-thyroid antibody positive [Unknown]
  - Anxiety [Not Recovered/Not Resolved]
  - Erectile dysfunction [Not Recovered/Not Resolved]
  - Sperm concentration decreased [Unknown]
  - Fatigue [Unknown]
  - Nightmare [Not Recovered/Not Resolved]
  - Upper limb fracture [Unknown]
  - Fatigue [Unknown]
  - Flatulence [Unknown]
  - Adverse drug reaction [Unknown]
  - Off label use [Unknown]
  - Drug ineffective [Unknown]
  - Weight increased [Not Recovered/Not Resolved]
  - Confusional state [Not Recovered/Not Resolved]
  - Testicular failure [Not Recovered/Not Resolved]
  - Hyperphagia [Unknown]
  - Androgen deficiency [Unknown]
  - Migraine [Unknown]
  - Headache [Unknown]
  - Facial bones fracture [Unknown]
  - Reproductive tract disorder [Not Recovered/Not Resolved]
  - Aspiration [Unknown]
  - Bone loss [Not Recovered/Not Resolved]
  - Metabolic syndrome [Unknown]
  - Sperm concentration decreased [Unknown]
  - Panic disorder [Unknown]
  - Myalgia [Unknown]
  - Arthropod bite [Recovered/Resolved]
  - Limb injury [Unknown]
  - Libido decreased [Not Recovered/Not Resolved]
  - Depression [Not Recovered/Not Resolved]
  - Sexual dysfunction [Not Recovered/Not Resolved]
  - Ejaculation disorder [Not Recovered/Not Resolved]
  - Appendicectomy [Unknown]
  - Arrhythmia [Unknown]
  - Hypothyroidism [Unknown]
  - Gynaecomastia [Unknown]
  - Arthropod bite [Unknown]

NARRATIVE: CASE EVENT DATE: 1998
